FAERS Safety Report 10162286 (Version 2)
Quarter: 2014Q3

REPORT INFORMATION
  Report Type: Spontaneous
  Country: US (occurrence: US)
  Receive Date: 20140509
  Receipt Date: 20140908
  Transmission Date: 20150326
  Serious: Yes (Hospitalization)
  Sender: FDA-Public Use
  Company Number: US-BAYER-2014-067581

PATIENT
  Age: 24 Year
  Sex: Female

DRUGS (21)
  1. DEPAKOTE ER [Concomitant]
     Active Substance: DIVALPROEX SODIUM
     Dosage: 500 MG, 2 TS DAY
     Route: 048
     Dates: start: 20041202
  2. HYDROCODONE BIT/APAP [Concomitant]
     Active Substance: ACETAMINOPHEN\HYDROCODONE BITARTRATE
     Dosage: 5/500 MG ONE T Q 4 TO 6 H PRN
     Route: 048
     Dates: start: 20041213
  3. ZITHROMAX [Concomitant]
     Active Substance: AZITHROMYCIN DIHYDRATE
     Dosage: 250 MG, UNK
     Dates: start: 20041008
  4. KLONOPIN [Concomitant]
     Active Substance: CLONAZEPAM
     Dosage: 0.5 MG, 1 TABLET TWICE PER DAY AND 2 TABLETS
     Route: 048
     Dates: start: 20041011
  5. SONATA [Concomitant]
     Active Substance: ZALEPLON
     Dosage: 10 MG, 1 C HS PRN
     Route: 048
     Dates: start: 20041202
  6. ROBAXIN [METHOCARBAMOL] [Concomitant]
     Dosage: 750 TABLETS 1 TABLET THREE TIMES PER DAY
     Route: 048
     Dates: start: 20041014
  7. PROMETHAZINE [Concomitant]
     Active Substance: PROMETHAZINE\PROMETHAZINE HYDROCHLORIDE
     Dosage: 25 MG, 1 T Q 6 H PRN
     Route: 048
     Dates: start: 20041105
  8. CLONAZEPAM. [Concomitant]
     Active Substance: CLONAZEPAM
     Dosage: 0.5 MG, TID
     Route: 048
     Dates: start: 20041222
  9. YASMIN [Suspect]
     Active Substance: DROSPIRENONE\ETHINYL ESTRADIOL
     Indication: CONTRACEPTION
     Dosage: UNK
     Dates: start: 2000, end: 2004
  10. LORAZEPAM. [Concomitant]
     Active Substance: LORAZEPAM
     Dosage: 0.5 MG, 1 TO 2 TABLETS AT NIGHT
     Route: 048
     Dates: start: 20041004
  11. ADDERALL XR [Concomitant]
     Active Substance: AMPHETAMINE ASPARTATE\AMPHETAMINE SULFATE\DEXTROAMPHETAMINE SACCHARATE\DEXTROAMPHETAMINE SULFATE
     Dosage: 1 CAPSULE MORNING
     Route: 048
     Dates: start: 20041024
  12. ALPRAZOLAM. [Concomitant]
     Active Substance: ALPRAZOLAM
     Dosage: 0.5 MG, 1 T BID TO TID
     Route: 048
     Dates: start: 20041105
  13. BUTALBITAL, ACETAMINOPHEN, CAFFEINE [Concomitant]
     Active Substance: ACETAMINOPHEN\BUTALBITAL\CAFFEINE
     Dosage: 1 T QHS
     Route: 048
     Dates: start: 20041126
  14. YAZ [Suspect]
     Active Substance: DROSPIRENONE\ETHINYL ESTRADIOL
     Indication: CONTRACEPTION
     Dosage: UNK
     Route: 048
     Dates: start: 2000, end: 2004
  15. FIORICET [Concomitant]
     Active Substance: ACETAMINOPHEN\BUTALBITAL\CAFFEINE
     Dosage: 1 TABLET
     Route: 048
     Dates: start: 20041014
  16. H-C TUSSIVE [Concomitant]
     Dosage: 1 TEA (TEASPOON Q 6 H
     Route: 048
     Dates: start: 20041021
  17. RISPERDAL [Concomitant]
     Active Substance: RISPERIDONE
     Dosage: 2 MG, 1 TO 2 TABLETS AT NIGHT
     Route: 048
     Dates: start: 20041014
  18. IBUPROFEN [IBUPROFEN] [Concomitant]
     Active Substance: IBUPROFEN
     Dosage: 800 MG, 1 T Q 6 H PRN
     Route: 048
     Dates: start: 20041227
  19. AMBIEN [Concomitant]
     Active Substance: ZOLPIDEM TARTRATE
     Dosage: 10 MG, 1 TABLET AT NIGHT
     Route: 048
     Dates: start: 20041014
  20. LIQUIBID-PD [Concomitant]
     Dosage: 1 TABLET
     Route: 048
     Dates: start: 20041024
  21. MEPERIDINE [Concomitant]
     Active Substance: MEPERIDINE
     Dosage: 1 T Q 4 TO 6 H PRN (WHEN NEEDED
     Route: 048
     Dates: start: 20041026

REACTIONS (3)
  - Deep vein thrombosis [Recovered/Resolved]
  - Thrombosis [None]
  - Injury [Recovered/Resolved]

NARRATIVE: CASE EVENT DATE: 2005
